FAERS Safety Report 10874380 (Version 2)
Quarter: 2015Q2

REPORT INFORMATION
  Report Type: Spontaneous
  Country: GB (occurrence: GB)
  Receive Date: 20150227
  Receipt Date: 20150401
  Transmission Date: 20150821
  Serious: Yes (Hospitalization)
  Sender: FDA-Public Use
  Company Number: GB-BAXTER-2015BAX009654

PATIENT
  Age: 67 Year
  Sex: Female

DRUGS (5)
  1. DOMPERIDONE [Concomitant]
     Active Substance: DOMPERIDONE
     Route: 048
     Dates: start: 20150128, end: 20150131
  2. DOMPERIDONE [Concomitant]
     Active Substance: DOMPERIDONE
     Indication: ANTIEMETIC SUPPORTIVE CARE
     Dosage: PRE-CYCLO
     Route: 048
     Dates: start: 20150128
  3. CYCLOPHOSPHAMIDE INJECTION 500 MG [Suspect]
     Active Substance: CYCLOPHOSPHAMIDE
     Indication: IMMUNOSUPPRESSION
     Route: 042
     Dates: start: 20150128
  4. UROMITEXAN_MESNA 100.00 MG/ML_SOLUTION FOR INFUSION_AMPULE, GLASS [Suspect]
     Active Substance: MESNA
     Indication: HAEMORRHAGIC CYST
     Dosage: 200MG PRE-CYCLO THEN 200MG 2HRS + 6HRS POST INFUSION
     Route: 065
     Dates: start: 20150128, end: 20150128
  5. SODIUM CHLORIDE 0.9% INTRAVENOUS INFUSION BP [Suspect]
     Active Substance: SODIUM CHLORIDE
     Indication: PRODUCT USED FOR UNKNOWN INDICATION
     Route: 065

REACTIONS (4)
  - Diarrhoea [Unknown]
  - Nausea [Recovering/Resolving]
  - Vomiting [Unknown]
  - Dizziness [Recovering/Resolving]

NARRATIVE: CASE EVENT DATE: 20150128
